FAERS Safety Report 6566023-1 (Version None)
Quarter: 2010Q1

REPORT INFORMATION
  Report Type: 
  Country: None (occurrence: None)
  Receive Date: 20100129
  Receipt Date: 20100129
  Transmission Date: 20100710
  Serious: Yes (Disabling, Other)
  Sender: FDA-Public Use
  Company Number: None

PATIENT
  Sex: Male
  Weight: 90.7194 kg

DRUGS (1)
  1. PROLIXIN [Suspect]
     Dosage: 1CC IM EACH 2 WEEKS

REACTIONS (2)
  - TARDIVE DYSKINESIA [None]
  - WEIGHT INCREASED [None]
